FAERS Safety Report 16030944 (Version 2)
Quarter: 2019Q2

REPORT INFORMATION
  Report Type: Spontaneous
  Country: US (occurrence: US)
  Receive Date: 20190304
  Receipt Date: 20190425
  Transmission Date: 20190711
  Serious: No
  Sender: FDA-Public Use
  Company Number: US-PFIZER INC-2019086827

PATIENT
  Age: 56 Year
  Sex: Female
  Weight: 97.7 kg

DRUGS (10)
  1. MORPHINE SULFATE. [Suspect]
     Active Substance: MORPHINE SULFATE
     Indication: SURGERY
  2. TRAMADOL. [Suspect]
     Active Substance: TRAMADOL
     Indication: BACK PAIN
     Dosage: 50 MG, 3X/DAY
  3. HYDROCODONE [Suspect]
     Active Substance: HYDROCODONE
     Indication: PAIN IN EXTREMITY
     Dosage: UNK, AS NEEDED (UP TO 4 TIMES A DAY)
  4. MORPHINE ER [Suspect]
     Active Substance: MORPHINE
     Indication: SURGERY
  5. MORPHINE SULFATE. [Suspect]
     Active Substance: MORPHINE SULFATE
     Indication: PAIN IN EXTREMITY
     Dosage: 10 MG, 5 TIMES A DAY
  6. MORPHINE ER [Suspect]
     Active Substance: MORPHINE
     Indication: PAIN IN EXTREMITY
     Dosage: 30 MG, 2X/DAY
     Dates: start: 201805, end: 201807
  7. TRAMADOL. [Suspect]
     Active Substance: TRAMADOL
     Indication: NECK PAIN
  8. HYDROCODONE [Suspect]
     Active Substance: HYDROCODONE
     Indication: BREAKTHROUGH PAIN
     Dosage: UNK, 1X/DAY, (10/365 ONCE A DAY)
  9. TRAMADOL. [Suspect]
     Active Substance: TRAMADOL
     Indication: PAIN IN EXTREMITY
     Dosage: UNK, AS NEEDED (UP TO 6 TIMES A DAY)
  10. MORPHINE SULFATE. [Suspect]
     Active Substance: MORPHINE SULFATE
     Indication: BREAKTHROUGH PAIN
     Dosage: 10 MG, UNK
     Dates: start: 201805, end: 201807

REACTIONS (1)
  - Drug ineffective [Unknown]
